FAERS Safety Report 20652967 (Version 4)
Quarter: 2024Q2

REPORT INFORMATION
  Report Type: Report from Study
  Country: CA (occurrence: None)
  Receive Date: 20220330
  Receipt Date: 20240620
  Transmission Date: 20240715
  Serious: Yes (Other)
  Sender: FDA-Public Use
  Company Number: CA-PFIZER INC-202200450825

PATIENT
  Age: 42 Year
  Sex: Female

DRUGS (28)
  1. METHOTREXATE [Suspect]
     Active Substance: METHOTREXATE
     Indication: Product used for unknown indication
  2. METHOTREXATE [Suspect]
     Active Substance: METHOTREXATE
  3. METHOTREXATE [Suspect]
     Active Substance: METHOTREXATE
  4. METHOTREXATE [Suspect]
     Active Substance: METHOTREXATE
  5. COSENTYX [Suspect]
     Active Substance: SECUKINUMAB
     Indication: Psoriatic arthropathy
  6. COSENTYX [Suspect]
     Active Substance: SECUKINUMAB
  7. COSENTYX [Suspect]
     Active Substance: SECUKINUMAB
  8. COSENTYX [Suspect]
     Active Substance: SECUKINUMAB
  9. COSENTYX [Suspect]
     Active Substance: SECUKINUMAB
  10. COSENTYX [Suspect]
     Active Substance: SECUKINUMAB
  11. LEFLUNOMIDE [Suspect]
     Active Substance: LEFLUNOMIDE
     Indication: Product used for unknown indication
  12. LEFLUNOMIDE [Suspect]
     Active Substance: LEFLUNOMIDE
  13. CELEBREX [Concomitant]
     Active Substance: CELECOXIB
  14. CELEBREX [Concomitant]
     Active Substance: CELECOXIB
  15. DESOXIMETASONE [Concomitant]
     Active Substance: DESOXIMETASONE
  16. DOVONEX [Concomitant]
     Active Substance: CALCIPOTRIENE
  17. DOVONEX [Concomitant]
     Active Substance: CALCIPOTRIENE
  18. MAGNESIUM [Concomitant]
     Active Substance: MAGNESIUM
  19. NAPROXEN [Concomitant]
     Active Substance: NAPROXEN
  20. NAPROXEN [Concomitant]
     Active Substance: NAPROXEN
  21. PREDNISONE [Concomitant]
     Active Substance: PREDNISONE
  22. PREDNISONE [Concomitant]
     Active Substance: PREDNISONE
  23. RIZATRIPTAN [Concomitant]
     Active Substance: RIZATRIPTAN
  24. RIZATRIPTAN [Concomitant]
     Active Substance: RIZATRIPTAN
  25. SULFASALAZINE [Concomitant]
     Active Substance: SULFASALAZINE
  26. SULFASALAZINE [Concomitant]
     Active Substance: SULFASALAZINE
  27. VENLAFAXINE [Concomitant]
     Active Substance: VENLAFAXINE HYDROCHLORIDE
  28. VENLAFAXINE [Concomitant]
     Active Substance: VENLAFAXINE HYDROCHLORIDE

REACTIONS (16)
  - Product dose omission issue [Recovered/Resolved]
  - Incorrect dose administered [Recovered/Resolved]
  - Arthralgia [Recovered/Resolved]
  - Candida infection [Recovered/Resolved]
  - Dry mouth [Recovered/Resolved]
  - Hypothyroidism [Recovered/Resolved]
  - Oral pain [Recovered/Resolved]
  - Palate injury [Recovered/Resolved]
  - Psoriatic arthropathy [Recovered/Resolved]
  - Tongue discolouration [Recovered/Resolved]
  - Tooth abscess [Recovered/Resolved]
  - Illness [Recovered/Resolved]
  - Phlebolith [Recovered/Resolved]
  - Synovitis [Recovered/Resolved]
  - Tongue coated [Recovered/Resolved]
  - Bacterial vaginosis [Recovered/Resolved]
